FAERS Safety Report 9728121 (Version 1)
Quarter: 2013Q4

REPORT INFORMATION
  Report Type: Spontaneous
  Country: JP (occurrence: None)
  Receive Date: 20131127
  Receipt Date: 20131127
  Transmission Date: 20140711
  Serious: Yes (Other)
  Sender: FDA-Public Use
  Company Number: JP-013581

PATIENT
  Sex: Male

DRUGS (1)
  1. DEGARELIX (GONAX) [Suspect]
     Indication: PROSTATE CANCER
     Route: 058
     Dates: start: 20130919, end: 20130919

REACTIONS (2)
  - Intentional drug misuse [None]
  - Platelet count decreased [None]
